FAERS Safety Report 9037092 (Version 1)
Quarter: 2013Q1

REPORT INFORMATION
  Report Type: Spontaneous
  Country: US (occurrence: US)
  Receive Date: 20130129
  Receipt Date: 20130129
  Transmission Date: 20140127
  Serious: No
  Sender: FDA-Public Use
  Company Number: US-009507513-1301USA011134

PATIENT
  Age: 83 Year
  Sex: Female

DRUGS (3)
  1. ZIOPTAN [Suspect]
     Indication: GLAUCOMA
     Dosage: 00.15% /ONE DROP IN EACH EYE IN THE EVENING
     Route: 047
     Dates: start: 20121229
  2. SIMVASTATIN TABLETS, USP [Concomitant]
  3. PLAVIX [Concomitant]
     Dosage: 00.15 UNK, UNK

REACTIONS (3)
  - Ocular hyperaemia [Recovering/Resolving]
  - Product quality issue [Unknown]
  - Eye pruritus [Recovering/Resolving]
